FAERS Safety Report 8556431-1 (Version None)
Quarter: 2012Q3

REPORT INFORMATION
  Report Type: 
  Country: None (occurrence: None)
  Receive Date: 20120801
  Receipt Date: 20120728
  Transmission Date: 20120928
  Serious: Yes (Death, Hospitalization, Other)
  Sender: FDA-Public Use
  Company Number: PHHY2012PT047002

PATIENT
  Sex: Male

DRUGS (1)
  1. AFINITOR [Suspect]
     Indication: RENAL CANCER
     Dosage: 10 MG, UNK
     Route: 048
     Dates: start: 20120227

REACTIONS (10)
  - FATIGUE [None]
  - AZOTAEMIA [None]
  - HEPATIC LESION [None]
  - SKIN EXFOLIATION [None]
  - PLEURAL EFFUSION [None]
  - ASTHENIA [None]
  - RESPIRATORY FAILURE [None]
  - DYSPNOEA [None]
  - MYALGIA [None]
  - PNEUMONITIS [None]
